FAERS Safety Report 8037857-1 (Version None)
Quarter: 2012Q1

REPORT INFORMATION
  Report Type: 
  Country: None (occurrence: None)
  Receive Date: 20120111
  Receipt Date: 20120106
  Transmission Date: 20120608
  Serious: Yes (Other)
  Sender: FDA-Public Use
  Company Number: PHHY2012NL001377

PATIENT
  Sex: Male

DRUGS (16)
  1. FLUVOXAMINE MALEATE [Concomitant]
     Dosage: 1 DF, TID
     Dates: start: 20050519
  2. LORISTA H (LOSARTAN/HYDROCHLOROTHIAZIDE) [Concomitant]
     Dosage: 1 DF, QD
  3. DUSPATAL [Concomitant]
     Dosage: 1 DF, QD
  4. LOSARTAN POTASSIUM [Concomitant]
     Dosage: 1 DF, QD
  5. NARATRIPTAN [Concomitant]
     Dosage: 1 DF, QD
  6. XYZAL [Concomitant]
     Dosage: 1 DF, QD
  7. METHYLCELLULOSE [Concomitant]
  8. METHADONE HCL [Suspect]
     Indication: DRUG DEPENDENCE
     Dosage: 1 DF, QD
     Route: 048
     Dates: start: 20111117, end: 20111121
  9. LOPERAMIDE [Concomitant]
     Dosage: 1 DF, BID
  10. CLOZAPINE [Concomitant]
     Dates: start: 20110705, end: 20111122
  11. ZYPREXA INTRAMUSCULAR [Concomitant]
     Dosage: 1 DF, QD
  12. XENICAL [Concomitant]
     Dosage: 1 DF, QD
  13. DOXAZOSIN MESYLATE [Concomitant]
     Dosage: 1 DF, UNK
  14. LYRICA [Concomitant]
     Dosage: 1 DF, UNK
  15. TRANXENE [Concomitant]
     Dosage: 1 DF, BID
  16. NITRAZEPAM [Concomitant]
     Dosage: 1 DF, QD

REACTIONS (1)
  - SEROTONIN SYNDROME [None]
